FAERS Safety Report 9676950 (Version 1)
Quarter: 2013Q4

REPORT INFORMATION
  Report Type: Spontaneous
  Country: US (occurrence: US)
  Receive Date: 20131108
  Receipt Date: 20131108
  Transmission Date: 20140711
  Serious: No
  Sender: FDA-Public Use
  Company Number: US-009507513-1311USA001389

PATIENT
  Age: 40 Year
  Sex: Female

DRUGS (1)
  1. SAPHRIS [Suspect]
     Indication: BIPOLAR I DISORDER
     Dosage: 5 MG/ TWICE DAILY
     Route: 060
     Dates: start: 20131025, end: 2013

REACTIONS (1)
  - Local swelling [Recovered/Resolved]
